FAERS Safety Report 8395148-3 (Version None)
Quarter: 2012Q2

REPORT INFORMATION
  Report Type: 
  Country: None (occurrence: None)
  Receive Date: 20120530
  Receipt Date: 20120518
  Transmission Date: 20120825
  Serious: Yes (Other)
  Sender: FDA-Public Use
  Company Number: US-PFIZER INC-2012004327

PATIENT
  Age: 38 Year
  Sex: Female

DRUGS (7)
  1. VENLAFAXINE [Concomitant]
     Indication: DEPRESSION
  2. BUPROPION [Concomitant]
     Indication: DEPRESSION
     Dosage: UNK
  3. BUPROPION [Concomitant]
     Indication: ANXIETY
  4. VENLAFAXINE [Concomitant]
     Indication: ANXIETY
     Dosage: UNK
  5. ALPRAZOLAM [Suspect]
     Indication: HEADACHE
     Dosage: UNK
     Route: 048
  6. ZOLPIDEM TARTRATE [Suspect]
     Indication: HEADACHE
     Dosage: 5 OR 10 MG LATE AFTERNOON
  7. CLONAZEPAM [Suspect]
     Indication: HEADACHE
     Dosage: UNK

REACTIONS (2)
  - AMNESIA [None]
  - FEELING DRUNK [None]
